FAERS Safety Report 21713909 (Version 2)
Quarter: 2022Q4

REPORT INFORMATION
  Report Type: Report from Study
  Country: US (occurrence: US)
  Receive Date: 20221212
  Receipt Date: 20221222
  Transmission Date: 20230112
  Serious: Yes (Hospitalization)
  Sender: FDA-Public Use
  Company Number: US-EXELIXIS-CABO-22058684

PATIENT
  Sex: Female
  Weight: 88.345 kg

DRUGS (3)
  1. CABOMETYX [Suspect]
     Active Substance: CABOZANTINIB S-MALATE
     Indication: Renal cancer
     Dosage: 60 MG, QD
  2. ADVIL [Concomitant]
     Active Substance: IBUPROFEN
  3. VITAMINS [Concomitant]
     Active Substance: VITAMINS

REACTIONS (1)
  - General physical health deterioration [Unknown]
